FAERS Safety Report 16655943 (Version 1)
Quarter: 2019Q3

REPORT INFORMATION
  Report Type: Spontaneous
  Country: US (occurrence: US)
  Receive Date: 20190731
  Receipt Date: 20190731
  Transmission Date: 20191004
  Serious: Yes (Life-Threatening, Hospitalization, Disabling, Other)
  Sender: FDA-Public Use
  Company Number: None

PATIENT
  Age: 35 Year
  Sex: Female

DRUGS (1)
  1. AIMOVIG [Suspect]
     Active Substance: ERENUMAB-AOOE
     Dosage: ?          OTHER FREQUENCY:EVERY 28 DAYS;OTHER ROUTE:SELF-INJECTION ON STOMACH?

REACTIONS (2)
  - Depression [None]
  - Suicide attempt [None]

NARRATIVE: CASE EVENT DATE: 20190708
